FAERS Safety Report 7162106-6 (Version None)
Quarter: 2010Q4

REPORT INFORMATION
  Report Type: 
  Country: None (occurrence: None)
  Receive Date: 20101215
  Receipt Date: 20090810
  Transmission Date: 20110411
  Serious: Yes (Hospitalization, Other)
  Sender: FDA-Public Use
  Company Number: NO-PFIZER INC-2009252233

PATIENT
  Age: 62 Year

DRUGS (9)
  1. LYRICA [Suspect]
     Indication: ARTHRITIS
     Dosage: 150 MG, 2X/DAY
     Route: 048
  2. OXYCONTIN [Suspect]
     Indication: PAIN
     Dosage: UNK
  3. MAREVAN ^NYCOMED^ [Concomitant]
     Dosage: UNK
  4. NITROGLYCERIN [Concomitant]
     Dosage: UNK
  5. RAMIPRIL [Concomitant]
     Dosage: UNK
  6. RELIFEX [Concomitant]
     Dosage: UNK
  7. SELO-ZOK [Concomitant]
     Dosage: UNK
  8. SIMVASTATIN [Concomitant]
     Dosage: UNK
  9. SYMBICORT [Concomitant]
     Dosage: UNK

REACTIONS (20)
  - ATRIAL FIBRILLATION [None]
  - BLOOD PRESSURE DECREASED [None]
  - CARDIAC FAILURE [None]
  - CHEST PAIN [None]
  - COUGH [None]
  - DIZZINESS [None]
  - DYSPNOEA [None]
  - HEART RATE DECREASED [None]
  - HEART RATE INCREASED [None]
  - HOT FLUSH [None]
  - HYPERACUSIS [None]
  - HYPERHIDROSIS [None]
  - HYPERSENSITIVITY [None]
  - LOSS OF CONSCIOUSNESS [None]
  - MUSCLE INJURY [None]
  - NASAL CONGESTION [None]
  - PERIPHERAL COLDNESS [None]
  - PRURITUS [None]
  - SKIN REACTION [None]
  - VISUAL IMPAIRMENT [None]
